FAERS Safety Report 7818524-3 (Version None)
Quarter: 2011Q4

REPORT INFORMATION
  Report Type: 
  Country: None (occurrence: None)
  Receive Date: 20111017
  Receipt Date: 20111012
  Transmission Date: 20120403
  Serious: Yes (Hospitalization, Disabling, Other)
  Sender: FDA-Public Use
  Company Number: US-MERCK-1106USA03112

PATIENT
  Age: 44 Year
  Sex: Female
  Weight: 60 kg

DRUGS (18)
  1. FOSAMAX PLUS D [Suspect]
     Indication: OSTEOPOROSIS
     Route: 048
     Dates: start: 20080301, end: 20090101
  2. CALCIUM (UNSPECIFIED) AND VITAMIN D (UNSPECIFIED) [Concomitant]
     Route: 065
  3. FLONASE [Concomitant]
     Indication: SEASONAL ALLERGY
     Dosage: 2 SPRAYS EACH NOSTRIL
     Route: 065
  4. COREG [Concomitant]
     Indication: BLOOD PRESSURE
     Route: 065
  5. GLUCOSAMINE [Concomitant]
     Dosage: HA JOINT FORMULA-GLUCOSAMINE
     Route: 065
  6. FOSAMAX [Suspect]
     Indication: OSTEOPENIA
     Dosage: 37.5 MG
     Route: 048
     Dates: start: 20000101, end: 20060101
  7. HORMONES (UNSPECIFIED) [Concomitant]
     Route: 065
     Dates: start: 19920101, end: 20000101
  8. FIBERCON [Concomitant]
     Route: 065
  9. FOSAMAX [Suspect]
     Route: 048
     Dates: start: 20070701, end: 20080301
  10. NORVASC [Concomitant]
     Indication: BLOOD PRESSURE
     Route: 065
  11. CYANOCOBALAMIN [Concomitant]
     Route: 051
  12. ALENDRONATE SODIUM [Suspect]
     Route: 048
     Dates: start: 20041001
  13. LISINOPRIL [Concomitant]
     Indication: BLOOD PRESSURE
     Route: 048
  14. VITAMINS (UNSPECIFIED) [Concomitant]
     Route: 065
  15. HYDROCHLOROTHIAZIDE [Concomitant]
     Indication: BLOOD PRESSURE
     Route: 048
  16. COUMADIN [Concomitant]
     Route: 065
  17. FOSAMAX [Suspect]
     Indication: OSTEOPOROSIS
     Dosage: 37.5 MG
     Route: 048
     Dates: start: 20000101, end: 20060101
  18. FOSAMAX [Suspect]
     Route: 048
     Dates: start: 20070701, end: 20080301

REACTIONS (63)
  - ADVERSE EVENT [None]
  - ARTHROPATHY [None]
  - UTERINE DISORDER [None]
  - INFECTION [None]
  - HYPERTONIC BLADDER [None]
  - PERIODONTAL DISEASE [None]
  - BLADDER DISORDER [None]
  - APPENDIX DISORDER [None]
  - OSTEOMYELITIS [None]
  - OSTEONECROSIS [None]
  - DEPRESSION [None]
  - DENTAL CARIES [None]
  - PAIN IN EXTREMITY [None]
  - ORAL FIBROMA [None]
  - MENOPAUSE [None]
  - BACK PAIN [None]
  - GALLBLADDER DISORDER [None]
  - FATIGUE [None]
  - THROMBOSIS [None]
  - COUGH [None]
  - CONSTIPATION [None]
  - COLITIS [None]
  - LIVER DISORDER [None]
  - NEPHROLITHIASIS [None]
  - GINGIVAL BLEEDING [None]
  - ANXIETY DISORDER [None]
  - OSTEONECROSIS OF JAW [None]
  - BONE DISORDER [None]
  - HOT FLUSH [None]
  - RETINAL ISCHAEMIA [None]
  - MASS [None]
  - OSTEOARTHRITIS [None]
  - DYSPAREUNIA [None]
  - DRUG ADMINISTRATION ERROR [None]
  - BONE NEOPLASM MALIGNANT [None]
  - ROTATOR CUFF SYNDROME [None]
  - LUNG NEOPLASM [None]
  - MUSCLE SPASMS [None]
  - RHEUMATOID ARTHRITIS [None]
  - POST GASTRIC SURGERY SYNDROME [None]
  - OBESITY [None]
  - DIZZINESS [None]
  - SLEEP DISORDER [None]
  - THROMBOPHLEBITIS [None]
  - OPTIC DISC DRUSEN [None]
  - HYPOAESTHESIA [None]
  - CHEST PAIN [None]
  - DYSPNOEA [None]
  - BENIGN NEOPLASM [None]
  - JAW FRACTURE [None]
  - RESPIRATORY TRACT CONGESTION [None]
  - GASTROOESOPHAGEAL REFLUX DISEASE [None]
  - GASTRITIS [None]
  - PYREXIA [None]
  - CHONDROSARCOMA [None]
  - ANAEMIA VITAMIN B12 DEFICIENCY [None]
  - TEMPERATURE INTOLERANCE [None]
  - LUNG HYPERINFLATION [None]
  - STRESS URINARY INCONTINENCE [None]
  - PALPITATIONS [None]
  - MENTAL DISORDER [None]
  - GINGIVAL DISORDER [None]
  - EOSINOPHILIA [None]
